FAERS Safety Report 20566386 (Version 1)
Quarter: 2022Q1

REPORT INFORMATION
  Report Type: Spontaneous
  Country: US (occurrence: None)
  Receive Date: 20220308
  Receipt Date: 20220308
  Transmission Date: 20220423
  Serious: No
  Sender: FDA-Public Use
  Company Number: None

PATIENT
  Age: 3 Year
  Sex: Male
  Weight: 11.9 kg

DRUGS (6)
  1. DOXORUBICIN HYDROCHLORIDE [Suspect]
     Active Substance: DOXORUBICIN HYDROCHLORIDE
     Dates: end: 20220202
  2. METHOTREXATE [Suspect]
     Active Substance: METHOTREXATE
     Dates: end: 20220105
  3. DEXAMETHASONE [Suspect]
     Active Substance: DEXAMETHASONE
     Dates: end: 20220202
  4. VINCRISTINE SULFATE [Suspect]
     Active Substance: VINCRISTINE SULFATE
     Dates: end: 20220126
  5. LEUCOVORIN CALCIUM [Suspect]
     Active Substance: LEUCOVORIN CALCIUM
     Dates: end: 20220106
  6. ONCASPAR [Suspect]
     Active Substance: PEGASPARGASE
     Dates: end: 20220108

REACTIONS (5)
  - Mucosal inflammation [None]
  - Sepsis [None]
  - Hypotension [None]
  - Roseolovirus test positive [None]
  - Febrile neutropenia [None]

NARRATIVE: CASE EVENT DATE: 20220114
